FAERS Safety Report 5625284-3 (Version None)
Quarter: 2008Q1

REPORT INFORMATION
  Report Type: 
  Country: None (occurrence: None)
  Receive Date: 20080213
  Receipt Date: 20080205
  Transmission Date: 20080703
  Serious: Yes (Other)
  Sender: FDA-Public Use
  Company Number: US-ABBOTT-08P-163-0437090-00

PATIENT
  Sex: Female
  Weight: 85.806 kg

DRUGS (10)
  1. HUMIRA [Suspect]
     Indication: RHEUMATOID ARTHRITIS
     Route: 058
     Dates: start: 20071206
  2. HUMIRA [Suspect]
     Indication: ANKYLOSING SPONDYLITIS
  3. LEVOTHYROXINE SODIUM [Concomitant]
     Indication: THYROIDECTOMY
     Route: 048
  4. FLUTICASONE PROPIONATE [Concomitant]
     Indication: HYPERSENSITIVITY
     Route: 061
  5. CETIRIZINE HCL [Concomitant]
     Indication: HYPERSENSITIVITY
     Dosage: 20 MG ALTERNATE WITH ADIIRC
     Route: 048
  6. ADIIRC [Concomitant]
     Indication: HYPERSENSITIVITY
     Route: 048
  7. ESTRODIL [Concomitant]
     Indication: MENOPAUSAL SYMPTOMS
     Route: 048
  8. OXYCODONE HCL [Concomitant]
     Indication: ARTHRALGIA
     Dosage: ALTERNATE WITH LOTAB
     Route: 048
  9. LOTAB [Concomitant]
     Indication: ARTHRALGIA
     Route: 048
  10. VITAMINS [Concomitant]
     Indication: VITAMIN SUPPLEMENTATION
     Route: 048

REACTIONS (3)
  - CEREBRAL HAEMORRHAGE [None]
  - MENINGIOMA BENIGN [None]
  - UPPER LIMB FRACTURE [None]
